FAERS Safety Report 7833361-1 (Version None)
Quarter: 2011Q4

REPORT INFORMATION
  Report Type: 
  Country: None (occurrence: None)
  Receive Date: 20111024
  Receipt Date: 20111018
  Transmission Date: 20120403
  Serious: Yes (Other)
  Sender: FDA-Public Use
  Company Number: US-PFIZER INC-2011149848

PATIENT
  Age: 45 Year
  Sex: Female

DRUGS (1)
  1. NEURONTIN [Suspect]
     Indication: INTERVERTEBRAL DISC PROTRUSION
     Dosage: 300 MG
     Dates: start: 20110527, end: 20110627

REACTIONS (2)
  - PERSONALITY CHANGE [None]
  - VIOLENCE-RELATED SYMPTOM [None]
